FAERS Safety Report 25945598 (Version 2)
Quarter: 2025Q4

REPORT INFORMATION
  Report Type: Spontaneous
  Country: CA (occurrence: None)
  Receive Date: 20251021
  Receipt Date: 20251120
  Transmission Date: 20260117
  Serious: Yes (Other)
  Sender: AMERICAN REGENT
  Company Number: CA-AMERICAN REGENT INC-2025003833

PATIENT
  Age: 30 Year
  Sex: Female

DRUGS (4)
  1. VENOFER [Suspect]
     Active Substance: IRON SUCROSE
     Indication: Fatigue
     Dosage: 300 MILLIGRAM (20 MG/ML) IN 250 ML NORMAL SALINE
  2. VENOFER [Suspect]
     Active Substance: IRON SUCROSE
     Dosage: 300 MILLIGRAM (20 MG/ML) IN 250 ML NORMAL SALINE
  3. VENOFER [Suspect]
     Active Substance: IRON SUCROSE
     Dosage: 300 MILLIGRAM (20 MG/ML) IN 250 ML NORMAL SALINE
     Dates: start: 20250516, end: 20250516
  4. HYDROCORTISONE [Suspect]
     Active Substance: HYDROCORTISONE
     Indication: Urticaria
     Dosage: 100 MILLIGRAM IN 100 ML NORMAL SALINE
     Route: 065
     Dates: start: 20250516, end: 20250516

REACTIONS (5)
  - Urticaria [Recovered/Resolved]
  - Hypotension [Recovered/Resolved]
  - Nausea [Recovered/Resolved]
  - Product use in unapproved indication [Unknown]
  - Off label use [Unknown]

NARRATIVE: CASE EVENT DATE: 20250516
